FAERS Safety Report 9156387 (Version 1)
Quarter: 2013Q1

REPORT INFORMATION
  Report Type: Spontaneous
  Country: IN (occurrence: None)
  Receive Date: 20130208
  Receipt Date: 20130208
  Transmission Date: 20140127
  Serious: Yes (Hospitalization)
  Sender: FDA-Public Use
  Company Number: VAL_01302_2013

PATIENT
  Age: 17 Year
  Sex: Female

DRUGS (2)
  1. CARBAMAZEPINE (CARBAMAZEPINE) [Suspect]
     Indication: PRODUCT USED FOR UNKNOWN INDICATION
     Dosage: (5 DAYS UNTIL NOT CONTINUING)
  2. SODIUM VALPROATE [Concomitant]

REACTIONS (7)
  - Erythema multiforme [None]
  - Somnolence [None]
  - Purulent discharge [None]
  - Vaginal haemorrhage [None]
  - Abnormal faeces [None]
  - Haemorrhage [None]
  - Blood pressure decreased [None]
